FAERS Safety Report 5649129-0 (Version None)
Quarter: 2008Q1

REPORT INFORMATION
  Report Type: 
  Country: None (occurrence: None)
  Receive Date: 20080131
  Receipt Date: 20071213
  Transmission Date: 20080703
  Serious: No
  Sender: FDA-Public Use
  Company Number: US200711006642

PATIENT
  Age: 69 Year
  Sex: Female
  Weight: 101.6 kg

DRUGS (7)
  1. BYETTA [Suspect]
     Indication: TYPE 2 DIABETES MELLITUS
     Dosage: 5 UG, 2/D, SUBCUTANEOUS ; 10 UG, 2/D, SUBCUTANEOUS
     Route: 058
     Dates: start: 20050901, end: 20051001
  2. BYETTA [Suspect]
     Indication: TYPE 2 DIABETES MELLITUS
     Dosage: 5 UG, 2/D, SUBCUTANEOUS ; 10 UG, 2/D, SUBCUTANEOUS
     Route: 058
     Dates: start: 20051001, end: 20070701
  3. PRANDIN (DEFLAZACORT) [Concomitant]
  4. GLUCOPHAGE [Concomitant]
  5. ARTHROTEC [Concomitant]
  6. LISINOPRIL [Concomitant]
  7. HCT (HYDROCHLOROTHIAZIDE) [Concomitant]

REACTIONS (3)
  - BLOOD GLUCOSE ABNORMAL [None]
  - RENAL FUNCTION TEST ABNORMAL [None]
  - WEIGHT DECREASED [None]
